FAERS Safety Report 25601611 (Version 1)
Quarter: 2025Q3

REPORT INFORMATION
  Report Type: Spontaneous
  Country: US (occurrence: None)
  Receive Date: 20250723
  Receipt Date: 20250723
  Transmission Date: 20251020
  Serious: Yes (Other)
  Sender: FDA-CTU
  Company Number: None

PATIENT
  Age: 66 Year
  Sex: Female
  Weight: 49.5 kg

DRUGS (6)
  1. CYMBALTA [Suspect]
     Active Substance: DULOXETINE HYDROCHLORIDE
     Indication: Neuropathy peripheral
     Dates: start: 20250419, end: 20250419
  2. ROSUVASTATIN [Concomitant]
     Active Substance: ROSUVASTATIN
  3. ALENDRONATE SODIUM [Concomitant]
     Active Substance: ALENDRONATE SODIUM
  4. Vitafusion women^s multi vitamin [Concomitant]
  5. CALCIUM CITRATE [Concomitant]
     Active Substance: CALCIUM CITRATE
  6. vital proteins collagen peptides [Concomitant]

REACTIONS (9)
  - Nausea [None]
  - Heart rate increased [None]
  - Peripheral coldness [None]
  - Hyperhidrosis [None]
  - Dizziness [None]
  - Headache [None]
  - Sleep disorder [None]
  - Decreased appetite [None]
  - Weight decreased [None]

NARRATIVE: CASE EVENT DATE: 20250420
